FAERS Safety Report 8598049-0 (Version None)
Quarter: 2012Q3

REPORT INFORMATION
  Report Type: 
  Country: None (occurrence: None)
  Receive Date: 20120816
  Receipt Date: 20120809
  Transmission Date: 20120928
  Serious: Yes (Hospitalization, Other)
  Sender: FDA-Public Use
  Company Number: US-PFIZER INC-2012185734

PATIENT
  Age: 8 Year
  Sex: Female

DRUGS (2)
  1. PENICILLIN G [Concomitant]
     Dosage: UNK
  2. PHENYTOIN [Suspect]
     Indication: LEUKOPENIA
     Dosage: 100 MG/DAY

REACTIONS (10)
  - PYREXIA [None]
  - LIVER FUNCTION TEST ABNORMAL [None]
  - EOSINOPHILIA [None]
  - HYPERSENSITIVITY [None]
  - RASH MORBILLIFORM [None]
  - HEADACHE [None]
  - TUBULOINTERSTITIAL NEPHRITIS [None]
  - PRURITUS [None]
  - DIARRHOEA [None]
  - NEPHROTIC SYNDROME [None]
